FAERS Safety Report 14182484 (Version 3)
Quarter: 2017Q4

REPORT INFORMATION
  Report Type: Spontaneous
  Country: US (occurrence: US)
  Receive Date: 20171113
  Receipt Date: 20171201
  Transmission Date: 20180321
  Serious: No
  Sender: FDA-Public Use
  Company Number: US-PFIZER INC-2017482094

PATIENT
  Sex: Female
  Weight: 53.7 kg

DRUGS (4)
  1. LYRICA [Suspect]
     Active Substance: PREGABALIN
     Indication: FIBROMYALGIA
     Dosage: 150 MG, 2X/DAY (EVERY 12 HOURS - ONE IN THE A.M. AND ONE IN THE P.M)
     Route: 048
  2. LYRICA [Suspect]
     Active Substance: PREGABALIN
     Dosage: 200 MG, DAILY (50 MG ALONG WITH THE 150 MG DOSE)
     Route: 048
     Dates: start: 201710, end: 2017
  3. LYRICA [Suspect]
     Active Substance: PREGABALIN
     Dosage: 200 MG, DAILY (50 MG AT ONE TIME AND 150 MG THE NEXT 12 HOURS)
     Route: 048
     Dates: start: 2017
  4. LYRICA [Suspect]
     Active Substance: PREGABALIN
     Dosage: 150 MG, 1X/DAY
     Route: 048

REACTIONS (8)
  - Drug ineffective [Not Recovered/Not Resolved]
  - Disturbance in attention [Not Recovered/Not Resolved]
  - Memory impairment [Not Recovered/Not Resolved]
  - Pain [Unknown]
  - Off label use [Unknown]
  - Fatigue [Unknown]
  - Condition aggravated [Unknown]
  - Feeling abnormal [Unknown]
